FAERS Safety Report 10953922 (Version 1)
Quarter: 2015Q1

REPORT INFORMATION
  Report Type: Spontaneous
  Country: None (occurrence: None)
  Receive Date: 20150226
  Receipt Date: 20150226
  Transmission Date: 20150721
  Serious: Yes (Other)
  Sender: FDA-Public Use
  Company Number: TPA2009A03866

PATIENT
  Age: 84 Year
  Sex: Female
  Weight: 86.18 kg

DRUGS (1)
  1. PREVACID [Suspect]
     Active Substance: LANSOPRAZOLE
     Indication: HIATUS HERNIA
     Dosage: 2 IN 1 D
     Route: 048

REACTIONS (3)
  - Dehydration [None]
  - Asthenia [None]
  - Vomiting [None]
